FAERS Safety Report 4320714-1 (Version None)
Quarter: 2004Q1

REPORT INFORMATION
  Report Type: 
  Country: None (occurrence: None)
  Receive Date: 20040318
  Receipt Date: 20040301
  Transmission Date: 20041129
  Serious: Yes (Hospitalization)
  Sender: FDA-Public Use
  Company Number: A02200400694

PATIENT
  Age: 79 Year
  Sex: Female

DRUGS (6)
  1. STILNOX-(ZOLPIDEM)-TABLET-10 MG [Suspect]
     Dosage: 10 MG OD ORAL
     Route: 048
     Dates: start: 20031126, end: 20040104
  2. EQUANIL [Suspect]
     Dosage: 400 MG OD ORAL
     Route: 048
     Dates: start: 20031126, end: 20040104
  3. ALLOPURINOL [Suspect]
     Dosage: 1 DF OD ORAL
     Route: 049
     Dates: start: 20031126, end: 20040104
  4. LASIX [Concomitant]
  5. LEVOTHYROXINE SODIUM [Concomitant]
  6. ATHYMIL (MIANSERIN HYDROCHLORIDE) [Concomitant]

REACTIONS (3)
  - DERMATITIS EXFOLIATIVE [None]
  - ERYTHEMA [None]
  - TOXIC SKIN ERUPTION [None]
